FAERS Safety Report 17020092 (Version 3)
Quarter: 2020Q1

REPORT INFORMATION
  Report Type: Spontaneous
  Country: US (occurrence: US)
  Receive Date: 20191112
  Receipt Date: 20200130
  Transmission Date: 20200409
  Serious: No
  Sender: FDA-Public Use
  Company Number: US-BAYER-2019-203867

PATIENT
  Age: 76 Year
  Sex: Female
  Weight: 102 kg

DRUGS (2)
  1. MIRALAX [Suspect]
     Active Substance: POLYETHYLENE GLYCOL 3350
     Indication: GASTROINTESTINAL DISORDER
     Dosage: UNK, QD
     Dates: end: 20191108
  2. MIRALAX [Suspect]
     Active Substance: POLYETHYLENE GLYCOL 3350
     Indication: GASTROINTESTINAL DISORDER
     Dosage: 1 DF
     Route: 048
     Dates: start: 20191109, end: 20191111

REACTIONS (7)
  - Constipation [Unknown]
  - Malaise [Unknown]
  - Dyschezia [Unknown]
  - Abdominal pain upper [Unknown]
  - Extra dose administered [Unknown]
  - Product odour abnormal [None]
  - Product taste abnormal [None]
